FAERS Safety Report 20750701 (Version 1)
Quarter: 2022Q2

REPORT INFORMATION
  Report Type: Spontaneous
  Country: US (occurrence: US)
  Receive Date: 20220426
  Receipt Date: 20220426
  Transmission Date: 20220721
  Serious: No
  Sender: FDA-Public Use
  Company Number: US-PFIZER INC-202200616758

PATIENT
  Age: 50 Year
  Sex: Female

DRUGS (1)
  1. PREMARIN [Suspect]
     Active Substance: ESTROGENS, CONJUGATED
     Dosage: 1 G (14 DAYS AND THEN EVERY OTHER 3 DAYS)

REACTIONS (6)
  - Burning sensation [Unknown]
  - Gait disturbance [Unknown]
  - Hypertension [Unknown]
  - Headache [Unknown]
  - Abdominal distension [Unknown]
  - Pain [Unknown]
